FAERS Safety Report 20313929 (Version 1)
Quarter: 2022Q1

REPORT INFORMATION
  Report Type: Spontaneous
  Country: US (occurrence: US)
  Receive Date: 20220109
  Receipt Date: 20220109
  Transmission Date: 20220423
  Serious: No
  Sender: FDA-Public Use
  Company Number: US-SA-SAC20220102000051

PATIENT
  Age: 58 Year
  Sex: Female

DRUGS (49)
  1. DUPIXENT [Suspect]
     Active Substance: DUPILUMAB
     Indication: Asthma
     Dosage: 300 MG, QOW
     Route: 058
     Dates: start: 20210824
  2. ADVAIR HFA [Concomitant]
     Active Substance: FLUTICASONE PROPIONATE\SALMETEROL XINAFOATE
  3. ADVAIR HFA [Concomitant]
     Active Substance: FLUTICASONE PROPIONATE\SALMETEROL XINAFOATE
  4. ALBUTEROL SULFATE [Concomitant]
     Active Substance: ALBUTEROL SULFATE
  5. ALBUTEROL SULFATE [Concomitant]
     Active Substance: ALBUTEROL SULFATE
  6. ALBUTEROL SULFATE [Concomitant]
     Active Substance: ALBUTEROL SULFATE
  7. ALBUTEROL SULFATE [Concomitant]
     Active Substance: ALBUTEROL SULFATE
  8. AZITHROMYCIN [Concomitant]
     Active Substance: AZITHROMYCIN
  9. AZITHROMYCIN [Concomitant]
     Active Substance: AZITHROMYCIN
  10. BACTRIM DS [Concomitant]
     Active Substance: SULFAMETHOXAZOLE\TRIMETHOPRIM
  11. BACTRIM DS [Concomitant]
     Active Substance: SULFAMETHOXAZOLE\TRIMETHOPRIM
  12. COMBIVENT [Concomitant]
     Active Substance: ALBUTEROL SULFATE\IPRATROPIUM BROMIDE
  13. COMBIVENT [Concomitant]
     Active Substance: ALBUTEROL SULFATE\IPRATROPIUM BROMIDE
  14. DIAZEPAM [Concomitant]
     Active Substance: DIAZEPAM
  15. DIAZEPAM [Concomitant]
     Active Substance: DIAZEPAM
  16. DIAZEPAM [Concomitant]
     Active Substance: DIAZEPAM
     Dosage: 5MG
  17. DILTIAZEM [Concomitant]
     Active Substance: DILTIAZEM
  18. DILTIAZEM [Concomitant]
     Active Substance: DILTIAZEM
  19. EPIPEN [Concomitant]
     Active Substance: EPINEPHRINE
  20. EPIPEN [Concomitant]
     Active Substance: EPINEPHRINE
  21. FASENRA [Concomitant]
     Active Substance: BENRALIZUMAB
  22. FASENRA [Concomitant]
     Active Substance: BENRALIZUMAB
  23. ACETAMINOPHEN\HYDROCODONE [Concomitant]
     Active Substance: ACETAMINOPHEN\HYDROCODONE
  24. LIDOCAINE [Concomitant]
     Active Substance: LIDOCAINE
  25. LIDOCAINE [Concomitant]
     Active Substance: LIDOCAINE
  26. LISINOPRIL [Concomitant]
     Active Substance: LISINOPRIL
  27. LISINOPRIL [Concomitant]
     Active Substance: LISINOPRIL
  28. MELOXICAM [Concomitant]
     Active Substance: MELOXICAM
  29. MELOXICAM [Concomitant]
     Active Substance: MELOXICAM
  30. MONTELUKAST SODIUM [Concomitant]
     Active Substance: MONTELUKAST SODIUM
  31. MONTELUKAST SODIUM [Concomitant]
     Active Substance: MONTELUKAST SODIUM
  32. PRAMIPEXOLE [Concomitant]
     Active Substance: PRAMIPEXOLE
  33. PRAMIPEXOLE [Concomitant]
     Active Substance: PRAMIPEXOLE
  34. PREDNISONE [Concomitant]
     Active Substance: PREDNISONE
  35. PREDNISONE [Concomitant]
     Active Substance: PREDNISONE
  36. SAVELLA [Concomitant]
     Active Substance: MILNACIPRAN HYDROCHLORIDE
  37. SAVELLA [Concomitant]
     Active Substance: MILNACIPRAN HYDROCHLORIDE
  38. TIZANIDINE HYDROCHLORIDE [Concomitant]
     Active Substance: TIZANIDINE HYDROCHLORIDE
  39. TIZANIDINE HYDROCHLORIDE [Concomitant]
     Active Substance: TIZANIDINE HYDROCHLORIDE
  40. TRIAMCINOLONE ACETONIDE [Concomitant]
     Active Substance: TRIAMCINOLONE ACETONIDE
  41. TRIAMCINOLONE ACETONIDE [Concomitant]
     Active Substance: TRIAMCINOLONE ACETONIDE
  42. XOLAIR [Concomitant]
     Active Substance: OMALIZUMAB
  43. XOLAIR [Concomitant]
     Active Substance: OMALIZUMAB
  44. CYCLOBENZAPRINE [Concomitant]
     Active Substance: CYCLOBENZAPRINE
  45. CYMBALTA [Concomitant]
     Active Substance: DULOXETINE HYDROCHLORIDE
  46. FASENRA [Concomitant]
     Active Substance: BENRALIZUMAB
  47. HYDROCHLOROTHIAZIDE\LISINOPRIL [Concomitant]
     Active Substance: HYDROCHLOROTHIAZIDE\LISINOPRIL
  48. NITROGLYCERIN [Concomitant]
     Active Substance: NITROGLYCERIN
  49. OXYCODONE/APAP [Concomitant]
     Active Substance: ACETAMINOPHEN\OXYCODONE HYDROCHLORIDE

REACTIONS (3)
  - Cough [Unknown]
  - Somnolence [Not Recovered/Not Resolved]
  - Quality of life decreased [Not Recovered/Not Resolved]
